FAERS Safety Report 21233931 (Version 2)
Quarter: 2022Q4

REPORT INFORMATION
  Report Type: Spontaneous
  Country: US (occurrence: None)
  Receive Date: 20220819
  Receipt Date: 20221018
  Transmission Date: 20230113
  Serious: No
  Sender: FDA-Public Use
  Company Number: 2022A290649

PATIENT

DRUGS (1)
  1. PRILOSEC [Suspect]
     Active Substance: OMEPRAZOLE MAGNESIUM
     Dosage: TOOK ABOUT HALF OF THE BOX
     Route: 048

REACTIONS (2)
  - Anorectal discomfort [Unknown]
  - Proctalgia [Unknown]
